FAERS Safety Report 8406528-1 (Version None)
Quarter: 2012Q2

REPORT INFORMATION
  Report Type: 
  Country: None (occurrence: None)
  Receive Date: 20120529
  Receipt Date: 20090619
  Transmission Date: 20120825
  Serious: Yes (Other)
  Sender: FDA-Public Use
  Company Number: JP-2012-12807

PATIENT

DRUGS (2)
  1. PLETAL [Suspect]
     Indication: CEREBRAL INFARCTION
  2. PAXIL [Suspect]

REACTIONS (2)
  - DIVERTICULUM INTESTINAL [None]
  - MELAENA [None]
